FAERS Safety Report 4711773-2 (Version None)
Quarter: 2005Q2

REPORT INFORMATION
  Report Type: 
  Country: None (occurrence: None)
  Receive Date: 20050629
  Receipt Date: 20050527
  Transmission Date: 20051028
  Serious: No
  Sender: FDA-Public Use
  Company Number: 05P-163-0301772-00

PATIENT
  Age: 60 Year
  Sex: Female
  Weight: 82.5547 kg

DRUGS (6)
  1. HUMIRA [Suspect]
     Indication: RHEUMATOID ARTHRITIS
     Dosage: 40 MG, 1 IN 2 WK, SUBCUTANEOUS
     Route: 058
     Dates: start: 20040501
  2. PREDNISONE [Concomitant]
  3. AZATHIOPRINE [Concomitant]
  4. CELECOXIB [Concomitant]
  5. AMLODIPINE BESYLATE [Concomitant]
  6. CALCIUM GLUCONATE [Concomitant]

REACTIONS (2)
  - BACK PAIN [None]
  - BONE DENSITY DECREASED [None]
